FAERS Safety Report 10151241 (Version 1)
Quarter: 2014Q2

REPORT INFORMATION
  Report Type: Spontaneous
  Country: US (occurrence: US)
  Receive Date: 20140502
  Receipt Date: 20140502
  Transmission Date: 20141212
  Serious: No
  Sender: FDA-Public Use
  Company Number: US-ASTRAZENECA-2014SE18346

PATIENT
  Age: 83 Year
  Sex: Female

DRUGS (5)
  1. PRILOSEC OTC [Suspect]
     Route: 048
     Dates: start: 20140310
  2. LYRICA [Concomitant]
     Dosage: UNKNOWN
  3. HYDROCHLOROTHIAZIDE [Concomitant]
     Dosage: UNKNOWN
  4. PAZERIL [Concomitant]
     Dosage: UNKNOWN
  5. METOPROLOL [Concomitant]
     Dosage: UNKNOWN

REACTIONS (2)
  - Pain in extremity [Unknown]
  - Product package associated injury [Unknown]
